FAERS Safety Report 11344235 (Version 2)
Quarter: 2015Q3

REPORT INFORMATION
  Report Type: Spontaneous
  Country: US (occurrence: None)
  Receive Date: 20150805
  Receipt Date: 20150819
  Transmission Date: 20151125
  Serious: Yes (Other)
  Sender: FDA-Public Use
  Company Number: US-2015CRT000567

PATIENT
  Age: 44 Year
  Sex: Female
  Weight: 136.1 kg

DRUGS (23)
  1. LISINOPRIL. [Concomitant]
     Active Substance: LISINOPRIL
  2. AMBIEN [Concomitant]
     Active Substance: ZOLPIDEM TARTRATE
  3. SAVELLA [Concomitant]
     Active Substance: MILNACIPRAN HYDROCHLORIDE
  4. LEVEMIR [Concomitant]
     Active Substance: INSULIN DETEMIR
  5. CLONIDINE. [Concomitant]
     Active Substance: CLONIDINE
  6. FUROSEMIDE. [Concomitant]
     Active Substance: FUROSEMIDE
  7. VITAMIN D (ERGOCALCIFEROL) [Concomitant]
     Active Substance: ERGOCALCIFEROL
  8. VITAMIN B12 [Concomitant]
     Active Substance: CYANOCOBALAMIN
  9. KRILL OIL (FISH OIL) [Concomitant]
  10. NOVOLOG [Concomitant]
     Active Substance: INSULIN ASPART
  11. SOMA [Concomitant]
     Active Substance: CARISOPRODOL
  12. PERCOCET (OXYCODONE HYDROCHLORIDE, OXYCODONE TEREPHTHALATE, PARACETAMOL) [Concomitant]
  13. KORLYM [Suspect]
     Active Substance: MIFEPRISTONE
     Indication: CUSHING^S SYNDROME
     Route: 048
     Dates: start: 20150716, end: 20150729
  14. NORVASC [Concomitant]
     Active Substance: AMLODIPINE BESYLATE
  15. OMEPRAZOLE. [Concomitant]
     Active Substance: OMEPRAZOLE
  16. ZOFRAN (ONDANSETRON) [Concomitant]
  17. KCL (POTASSIUM CHLORIDE) [Concomitant]
  18. METFORMIN [Concomitant]
     Active Substance: METFORMIN HYDROCHLORIDE
  19. METOPROLOL [Concomitant]
     Active Substance: METOPROLOL
  20. MECLIZINE (MECLOZINE) [Concomitant]
  21. CYMBALTA [Concomitant]
     Active Substance: DULOXETINE HYDROCHLORIDE
  22. LYRICA [Concomitant]
     Active Substance: PREGABALIN
  23. PRAVASTATIN [Concomitant]
     Active Substance: PRAVASTATIN\PRAVASTATIN SODIUM

REACTIONS (16)
  - Condition aggravated [None]
  - Hypokinesia [None]
  - Cough [None]
  - Heart rate decreased [None]
  - Food aversion [None]
  - Vomiting [None]
  - Malaise [None]
  - Tooth extraction [None]
  - Palpitations [None]
  - Cardiac flutter [None]
  - Lymph node pain [None]
  - Dysgeusia [None]
  - Constipation [None]
  - Diarrhoea [None]
  - Throat irritation [None]
  - Decreased appetite [None]

NARRATIVE: CASE EVENT DATE: 201507
